FAERS Safety Report 15914240 (Version 1)
Quarter: 2019Q1

REPORT INFORMATION
  Report Type: Spontaneous
  Country: US (occurrence: US)
  Receive Date: 20190204
  Receipt Date: 20190204
  Transmission Date: 20190417
  Serious: Yes (Hospitalization)
  Sender: FDA-Public Use
  Company Number: None

PATIENT
  Sex: Female

DRUGS (1)
  1. NEORAL [Suspect]
     Active Substance: CYCLOSPORINE
     Indication: PRODUCT USED FOR UNKNOWN INDICATION
     Route: 048

REACTIONS (13)
  - Pleural effusion [None]
  - Fatigue [None]
  - Weight decreased [None]
  - Inappropriate schedule of product administration [None]
  - Gastric disorder [None]
  - Nausea [None]
  - Renal failure [None]
  - Cough [None]
  - Tinnitus [None]
  - Cardiac failure congestive [None]
  - Neuropathy peripheral [None]
  - Muscle spasms [None]
  - Vision blurred [None]
